FAERS Safety Report 7545780-1 (Version None)
Quarter: 2011Q2

REPORT INFORMATION
  Report Type: 
  Country: None (occurrence: None)
  Receive Date: 20110614
  Receipt Date: 20110607
  Transmission Date: 20111010
  Serious: Yes (Other)
  Sender: FDA-Public Use
  Company Number: US-SANOFI-AVENTIS-2011SA036180

PATIENT
  Age: 48 Year
  Sex: Female

DRUGS (4)
  1. ALLEGRA [Suspect]
     Route: 048
     Dates: start: 19990101
  2. FEXOFENADINE HCL [Suspect]
     Indication: VERTIGO
     Route: 048
     Dates: start: 19990101
  3. FEXOFENADINE HCL [Suspect]
     Route: 048
     Dates: start: 19990101
  4. ALLEGRA [Suspect]
     Indication: VERTIGO
     Route: 048
     Dates: start: 19990101

REACTIONS (5)
  - HEART RATE INCREASED [None]
  - VISION BLURRED [None]
  - DRY EYE [None]
  - ANGLE CLOSURE GLAUCOMA [None]
  - VERTIGO [None]
